FAERS Safety Report 18914470 (Version 1)
Quarter: 2021Q1

REPORT INFORMATION
  Report Type: Spontaneous
  Country: AU (occurrence: AU)
  Receive Date: 20210218
  Receipt Date: 20210218
  Transmission Date: 20210420
  Serious: No
  Sender: FDA-Public Use
  Company Number: AU-JAZZ-2020-AU-018243

PATIENT
  Age: 52 Year
  Sex: Male

DRUGS (1)
  1. ZEPZELCA [Suspect]
     Active Substance: LURBINECTEDIN
     Indication: PRODUCT USED FOR UNKNOWN INDICATION
     Dosage: D1Q3W
     Route: 042
     Dates: start: 20200504, end: 20200504

REACTIONS (1)
  - Disease progression [Unknown]
